FAERS Safety Report 23415072 (Version 1)
Quarter: 2024Q1

REPORT INFORMATION
  Report Type: Spontaneous
  Country: CH (occurrence: CH)
  Receive Date: 20240118
  Receipt Date: 20240118
  Transmission Date: 20240410
  Serious: Yes (Hospitalization, Other)
  Sender: FDA-Public Use
  Company Number: CH-TEVA-VS-3143392

PATIENT
  Age: 6 Decade

DRUGS (5)
  1. OXALIPLATIN [Suspect]
     Active Substance: OXALIPLATIN
     Indication: Colon cancer
     Dosage: RECEIVED AT DAY 1 OF EVERY CYCLE OF CHEMOTHERAPY TILL 11 CYCLE
     Route: 065
  2. LEUCOVORIN [Suspect]
     Active Substance: LEUCOVORIN\LEUCOVORIN CALCIUM
     Indication: Colon cancer
     Dosage: RECEIVED AT DAY 1 OF EVERY CYCLE OF CHEMOTHERAPY TILL 11 CYCLES
     Route: 065
  3. FLUOROURACIL [Suspect]
     Active Substance: FLUOROURACIL
     Indication: Colon cancer
     Dosage: RECEIVED BOLUS AT DAY 1 OF EVERY CYCLE OF CHEMOTHERAPY TILL 11 CYCLES
     Route: 065
  4. FLUOROURACIL [Suspect]
     Active Substance: FLUOROURACIL
     Indication: Colon cancer
     Dosage: RECEIVED INFUSION OVER 48 HOURS AT DAY 1-2 OF EVERY CHEMOTHERAPY TILL 11 CYCLES
     Route: 065
  5. FENOFIBRATE [Concomitant]
     Active Substance: FENOFIBRATE
     Indication: Hypertriglyceridaemia
     Route: 065

REACTIONS (3)
  - Polyneuropathy [Unknown]
  - Deep vein thrombosis [Unknown]
  - Hypertriglyceridaemia [Recovered/Resolved]
